FAERS Safety Report 10162103 (Version 1)
Quarter: 2014Q2

REPORT INFORMATION
  Report Type: Spontaneous
  Country: US (occurrence: None)
  Receive Date: 20140507
  Receipt Date: 20140507
  Transmission Date: 20141212
  Serious: Yes (Other)
  Sender: FDA-Public Use
  Company Number: 001724920A

PATIENT
  Age: 35 Year
  Sex: Female

DRUGS (5)
  1. MB ANTIOXIDANT DAY CREME SPF 20 [Suspect]
     Dosage: DERMAL
     Dates: start: 20140405, end: 20140411
  2. MB SKIN BRIGHTENING DECOLLETE + NECK TREATMENT SPF 15 [Suspect]
     Dosage: DERMAL
     Dates: start: 20140405, end: 20140411
  3. PRILOSEC [Concomitant]
  4. VITAMIN C [Concomitant]
  5. IBUPROFEN [Concomitant]

REACTIONS (4)
  - Swelling face [None]
  - Urticaria [None]
  - Pruritus [None]
  - Rash macular [None]
